FAERS Safety Report 23185929 (Version 2)
Quarter: 2023Q4

REPORT INFORMATION
  Report Type: Report from Study
  Country: US (occurrence: US)
  Receive Date: 20231115
  Receipt Date: 20231211
  Transmission Date: 20240109
  Serious: No
  Sender: FDA-Public Use
  Company Number: US-ALXN-A202313834

PATIENT
  Age: 41 Year
  Sex: Female

DRUGS (1)
  1. STRENSIQ [Suspect]
     Active Substance: ASFOTASE ALFA
     Indication: Hypophosphatasia
     Dosage: 73.9 KILOGRAM
     Route: 065

REACTIONS (8)
  - Toothache [Unknown]
  - Arthralgia [Unknown]
  - Oligomenorrhoea [Unknown]
  - Weight decreased [Unknown]
  - Constipation [Unknown]
  - Human placental lactogen increased [Unknown]
  - Skin discolouration [Unknown]
  - Flatulence [Unknown]

NARRATIVE: CASE EVENT DATE: 20230201
